FAERS Safety Report 5661974-4 (Version None)
Quarter: 2008Q1

REPORT INFORMATION
  Report Type: 
  Country: None (occurrence: None)
  Receive Date: 20080312
  Receipt Date: 20080229
  Transmission Date: 20080703
  Serious: Yes (Other)
  Sender: FDA-Public Use
  Company Number: US-ELI_LILLY_AND_COMPANY-US200803000180

PATIENT
  Sex: Female

DRUGS (3)
  1. FORTEO [Suspect]
     Indication: OSTEOPOROSIS
     Dosage: UNK, UNK
     Route: 058
  2. EVISTA [Suspect]
     Dosage: UNK, UNK
     Route: 048
  3. CELEBREX [Concomitant]

REACTIONS (6)
  - ASTHENIA [None]
  - BONE DISORDER [None]
  - DRUG INEFFECTIVE [None]
  - FATIGUE [None]
  - LOSS OF CONSCIOUSNESS [None]
  - ROAD TRAFFIC ACCIDENT [None]
